FAERS Safety Report 14647517 (Version 1)
Quarter: 2018Q1

REPORT INFORMATION
  Report Type: Report from Study
  Country: DE (occurrence: DE)
  Receive Date: 20180316
  Receipt Date: 20180316
  Transmission Date: 20180509
  Serious: Yes (Hospitalization)
  Sender: FDA-Public Use
  Company Number: DE-INCYTE CORPORATION-2016IN007197

PATIENT

DRUGS (5)
  1. INCB018424 [Suspect]
     Active Substance: RUXOLITINIB
     Indication: PRIMARY MYELOFIBROSIS
     Dosage: 30 OT, UNK
     Route: 048
     Dates: start: 20160503
  2. INCB018424 [Suspect]
     Active Substance: RUXOLITINIB
     Dosage: 40 MG/DAY/TWICE
     Route: 048
     Dates: start: 20170922
  3. INCB018424 [Suspect]
     Active Substance: RUXOLITINIB
     Dosage: 30 MG/DAY/TWICE
     Route: 048
     Dates: start: 20160701, end: 20160715
  4. INCB018424 [Suspect]
     Active Substance: RUXOLITINIB
     Dosage: 30MG/DAY/TWICE
     Route: 048
     Dates: start: 20160603
  5. CLINDAMYCIN. [Concomitant]
     Active Substance: CLINDAMYCIN
     Indication: PRODUCT USED FOR UNKNOWN INDICATION
     Dosage: 900 MG, UNK
     Route: 065
     Dates: start: 20170825, end: 20170903

REACTIONS (5)
  - Splenic lesion [Recovered/Resolved]
  - Rash pruritic [Recovered/Resolved]
  - Haemoglobin decreased [Unknown]
  - Splenomegaly [Recovering/Resolving]
  - Arthropathy [Not Recovered/Not Resolved]

NARRATIVE: CASE EVENT DATE: 20160713
